FAERS Safety Report 5832800-5 (Version None)
Quarter: 2008Q3

REPORT INFORMATION
  Report Type: 
  Country: None (occurrence: None)
  Receive Date: 20080804
  Receipt Date: 20080725
  Transmission Date: 20090109
  Serious: Yes (Hospitalization)
  Sender: FDA-Public Use
  Company Number: JP-ROCHE-577826

PATIENT
  Age: 27 Year
  Sex: Female

DRUGS (9)
  1. CLONAZEPAM [Suspect]
     Indication: SCHIZOPHRENIA
     Route: 065
  2. BROMPERIDOL [Suspect]
     Indication: SCHIZOPHRENIA
     Route: 065
  3. RISPERIDONE [Suspect]
     Indication: SCHIZOPHRENIA
     Route: 065
  4. RISPERIDONE [Suspect]
     Route: 065
  5. BIPERIDEN HYDROCHLORIDE TAB [Suspect]
     Indication: SCHIZOPHRENIA
     Dosage: TREATMENT WITH BIPERIDEN WAS INCREASED GRADUALLY AND THEN DISCONTINUED.
     Route: 065
  6. BROTIZOLAM [Suspect]
     Indication: SCHIZOPHRENIA
     Route: 065
  7. LORMETAZEPAM [Suspect]
     Indication: SCHIZOPHRENIA
     Route: 065
  8. ESTAZOLAM [Suspect]
     Indication: SCHIZOPHRENIA
     Route: 065
  9. ESTAZOLAM [Suspect]
     Route: 065

REACTIONS (1)
  - DYSTONIA [None]
